FAERS Safety Report 16932261 (Version 1)
Quarter: 2019Q4

REPORT INFORMATION
  Report Type: Spontaneous
  Country: US (occurrence: US)
  Receive Date: 20191017
  Receipt Date: 20191017
  Transmission Date: 20200122
  Serious: No
  Sender: FDA-Public Use
  Company Number: US-TEVA-2019-US-1122721

PATIENT
  Sex: Female

DRUGS (3)
  1. TYLENO [Concomitant]
     Route: 065
  2. SYNRIBO [Suspect]
     Active Substance: OMACETAXINE MEPESUCCINATE
     Dosage: 1?8 MG/0.51 ML
     Route: 065
  3. OXYCODONE [Concomitant]
     Active Substance: OXYCODONE
     Route: 065

REACTIONS (1)
  - Injection site pruritus [Unknown]
